FAERS Safety Report 9130399 (Version 1)
Quarter: 2013Q1

REPORT INFORMATION
  Report Type: Spontaneous
  Country: FR (occurrence: FR)
  Receive Date: 20130228
  Receipt Date: 20130228
  Transmission Date: 20140127
  Serious: Yes (Hospitalization, Disabling)
  Sender: FDA-Public Use
  Company Number: FR-B.I. PHARMACEUTICALS,INC./RIDGEFIELD-2013-FF-00574FF

PATIENT
  Age: 77 Year
  Sex: Female

DRUGS (3)
  1. PRADAXA [Suspect]
     Indication: ATRIAL FIBRILLATION
     Dosage: 220 MG
     Route: 048
     Dates: start: 20121210, end: 20130131
  2. LEVOTHYROX [Concomitant]
     Indication: HYPOTHYROIDISM
  3. LASILIX [Concomitant]
     Indication: HYPERTENSION
     Route: 048

REACTIONS (1)
  - Embolic cerebral infarction [Recovered/Resolved]
